FAERS Safety Report 10648400 (Version 1)
Quarter: 2014Q4

REPORT INFORMATION
  Report Type: Spontaneous
  Country: DE (occurrence: DE)
  Receive Date: 20141212
  Receipt Date: 20141212
  Transmission Date: 20150529
  Serious: Yes (Life-Threatening, Hospitalization)
  Sender: FDA-Public Use
  Company Number: DE-JNJFOC-20141205160

PATIENT
  Age: 60 Year
  Sex: Male
  Weight: 62 kg

DRUGS (1)
  1. IMBRUVICA [Suspect]
     Active Substance: IBRUTINIB
     Indication: CHRONIC LYMPHOCYTIC LEUKAEMIA
     Dosage: ALSO REPORTED AS 140 MG 3 IN ONE DAY
     Route: 048
     Dates: start: 20141022, end: 20141106

REACTIONS (3)
  - Pancytopenia [Not Recovered/Not Resolved]
  - Endocarditis [Not Recovered/Not Resolved]
  - Bone marrow toxicity [Not Recovered/Not Resolved]

NARRATIVE: CASE EVENT DATE: 20141106
